FAERS Safety Report 9051248 (Version 1)
Quarter: 2013Q1

REPORT INFORMATION
  Report Type: Spontaneous
  Country: US (occurrence: US)
  Receive Date: 20130206
  Receipt Date: 20130206
  Transmission Date: 20140127
  Serious: Yes (Death, Disabling, Other)
  Sender: FDA-Public Use
  Company Number: US-ASTELLAS-2013US001334

PATIENT
  Age: 54 None
  Sex: Male

DRUGS (1)
  1. PROGRAF [Suspect]
     Indication: HEART TRANSPLANT
     Dosage: 7 MG, BID
     Route: 048
     Dates: start: 20120801, end: 20130110

REACTIONS (5)
  - Death [Fatal]
  - Bedridden [Unknown]
  - Cognitive disorder [Unknown]
  - Dysphagia [Unknown]
  - Pyrexia [Unknown]
